FAERS Safety Report 5941192-2 (Version None)
Quarter: 2008Q4

REPORT INFORMATION
  Report Type: 
  Country: None (occurrence: None)
  Receive Date: 20081104
  Receipt Date: 20081024
  Transmission Date: 20090506
  Serious: Yes (Death)
  Sender: FDA-Public Use
  Company Number: NO-PFIZER INC-2008089804

PATIENT
  Sex: Male

DRUGS (5)
  1. LIPITOR [Suspect]
     Indication: HYPERCHOLESTEROLAEMIA
     Route: 048
     Dates: start: 20000101, end: 20080603
  2. EZETROL [Interacting]
     Indication: HYPERCHOLESTEROLAEMIA
     Route: 048
     Dates: start: 20071101, end: 20080603
  3. ALL OTHER THERAPEUTIC PRODUCTS [Interacting]
     Indication: MUSCULOSKELETAL STIFFNESS
     Dosage: TEXT:ONE TO TWO TIMES A WEEK, OCCASIONALLY
     Route: 048
     Dates: start: 20080101, end: 20080401
  4. NEXIUM [Concomitant]
     Indication: DYSPEPSIA
     Route: 048
     Dates: start: 20080731, end: 20080803
  5. APROVEL [Concomitant]
     Indication: HYPERTENSION
     Route: 048
     Dates: end: 20080603

REACTIONS (6)
  - ACUTE HEPATIC FAILURE [None]
  - DEATH [None]
  - GASTROINTESTINAL PAIN [None]
  - HEPATIC NECROSIS [None]
  - HEPATORENAL SYNDROME [None]
  - JAUNDICE [None]
